FAERS Safety Report 5792559-7 (Version None)
Quarter: 2008Q2

REPORT INFORMATION
  Report Type: 
  Country: None (occurrence: None)
  Receive Date: 20080626
  Receipt Date: 20080619
  Transmission Date: 20081010
  Serious: Yes (Hospitalization, Other)
  Sender: FDA-Public Use
  Company Number: US-BAYER-200823794NA

PATIENT
  Age: 53 Year
  Sex: Female
  Weight: 59 kg

DRUGS (8)
  1. SORAFENIB [Suspect]
     Indication: BREAST CANCER
     Dosage: TOTAL DAILY DOSE: 800 MG  UNIT DOSE: 200 MG
     Route: 048
     Dates: start: 20070827, end: 20080517
  2. PACLITAXEL [Suspect]
     Indication: BREAST CANCER
     Dates: end: 20071119
  3. DOXORUBICIN HCL [Suspect]
     Indication: BREAST CANCER
     Dates: end: 20070806
  4. CYCLOPHOSPHAMIDE [Suspect]
     Indication: BREAST CANCER
     Dates: end: 20070806
  5. TAMOXIFEN CITRATE [Concomitant]
  6. AMLODIPINE [Concomitant]
  7. WELLBUTRIN [Concomitant]
  8. DOPAMINE HCL [Concomitant]

REACTIONS (6)
  - BACK PAIN [None]
  - CHEST PAIN [None]
  - COUGH [None]
  - DYSPNOEA [None]
  - HYPOTENSION [None]
  - LEFT VENTRICULAR DYSFUNCTION [None]
